FAERS Safety Report 7530507-X (Version None)
Quarter: 2011Q2

REPORT INFORMATION
  Report Type: 
  Country: None (occurrence: None)
  Receive Date: 20110607
  Receipt Date: 20110526
  Transmission Date: 20111010
  Serious: Yes (Other)
  Sender: FDA-Public Use
  Company Number: CA-UCBSA-013221

PATIENT
  Sex: Female
  Weight: 77 kg

DRUGS (9)
  1. PREDNISONE [Suspect]
  2. PREDNISONE [Suspect]
     Dosage: 5-10 MG/DAY
  3. PLAQUENIL [Concomitant]
  4. INDOMETHACIN [Concomitant]
  5. CIMZIA [Suspect]
     Dosage: 200
     Route: 058
  6. CIMZIA [Suspect]
     Indication: RHEUMATOID ARTHRITIS
     Route: 058
     Dates: start: 20100223, end: 20100531
  7. COZAAR [Concomitant]
  8. CIMZIA [Suspect]
     Dosage: UNKNOWN
     Route: 058
  9. HYDRA-ZIDE [Concomitant]

REACTIONS (2)
  - SKIN ULCER [None]
  - CELLULITIS [None]
